FAERS Safety Report 6775540-0 (Version None)
Quarter: 2010Q2

REPORT INFORMATION
  Report Type: 
  Country: None (occurrence: None)
  Receive Date: 20100617
  Receipt Date: 20100611
  Transmission Date: 20101027
  Serious: Yes (Death)
  Sender: FDA-Public Use
  Company Number: IT-JNJFOC-20100604672

PATIENT

DRUGS (8)
  1. CLADRIBINE [Suspect]
     Indication: SPLENIC MARGINAL ZONE LYMPHOMA
     Dosage: 5MG/M2/WEEK FOR A TOTAL OF SIX CYCLES
     Route: 042
  2. RITUXIMAB [Suspect]
     Indication: SPLENIC MARGINAL ZONE LYMPHOMA
     Route: 065
  3. ACYCLOVIR [Concomitant]
     Indication: ANTI-INFECTIVE THERAPY
     Route: 065
  4. FLUCONAZOLE [Concomitant]
     Indication: ANTI-INFECTIVE THERAPY
     Route: 065
  5. COTRIM [Concomitant]
     Indication: ANTI-INFECTIVE THERAPY
     Route: 065
  6. MONOCLONAL ANTIBODIES [Concomitant]
     Indication: SPLENIC MARGINAL ZONE LYMPHOMA
     Route: 065
  7. DIPHENHYDRAMINE [Concomitant]
     Indication: PREMEDICATION
     Route: 048
  8. ACETAMINOPHEN [Concomitant]
     Indication: PREMEDICATION
     Route: 048

REACTIONS (2)
  - MALIGNANT NEOPLASM PROGRESSION [None]
  - SPLENIC MARGINAL ZONE LYMPHOMA [None]
